FAERS Safety Report 7545736-9 (Version None)
Quarter: 2011Q2

REPORT INFORMATION
  Report Type: 
  Country: None (occurrence: None)
  Receive Date: 20110613
  Receipt Date: 20110613
  Transmission Date: 20111010
  Serious: Yes (Life-Threatening, Hospitalization)
  Sender: FDA-Public Use
  Company Number: None

PATIENT
  Sex: Female
  Weight: 68.9467 kg

DRUGS (1)
  1. WARFARIN SODIUM [Suspect]
     Indication: DEEP VEIN THROMBOSIS
     Dates: start: 20100508, end: 20100702

REACTIONS (6)
  - URINARY TRACT INFECTION [None]
  - SPINAL HAEMATOMA [None]
  - PELVIC PAIN [None]
  - BLOOD URINE PRESENT [None]
  - HYPOAESTHESIA ORAL [None]
  - PARAPLEGIA [None]
